FAERS Safety Report 23070560 (Version 1)
Quarter: 2023Q4

REPORT INFORMATION
  Report Type: Report from Study
  Country: BG (occurrence: BG)
  Receive Date: 20231016
  Receipt Date: 20231016
  Transmission Date: 20240110
  Serious: Yes (Hospitalization, Other)
  Sender: FDA-Public Use
  Company Number: BG-ABBVIE-5450209

PATIENT
  Age: 67 Year
  Sex: Female

DRUGS (1)
  1. RINVOQ [Suspect]
     Active Substance: UPADACITINIB
     Indication: Rheumatoid arthritis
     Dosage: 1 TABLET, DISCONTINUED IN 2023
     Route: 048
     Dates: start: 202303

REACTIONS (2)
  - Wrist fracture [Unknown]
  - Accident [Unknown]

NARRATIVE: CASE EVENT DATE: 20230101
